FAERS Safety Report 9925168 (Version 5)
Quarter: 2015Q2

REPORT INFORMATION
  Report Type: Spontaneous
  Country: US (occurrence: None)
  Receive Date: 20140220
  Receipt Date: 20150608
  Transmission Date: 20150821
  Serious: Yes (Hospitalization)
  Sender: FDA-Public Use
  Company Number: 1713747-2014-99908

PATIENT
  Age: 56 Year
  Sex: Male
  Weight: 95.45 kg

DRUGS (11)
  1. COZAAR [Concomitant]
     Active Substance: LOSARTAN POTASSIUM
  2. LOPRESSOR [Concomitant]
     Active Substance: METOPROLOL TARTRATE
  3. XANAX [Concomitant]
     Active Substance: ALPRAZOLAM
  4. HYPOCHOLORTHIAZIDE [Concomitant]
  5. NEXIUM [Concomitant]
     Active Substance: ESOMEPRAZOLE MAGNESIUM
  6. LASIX [Concomitant]
     Active Substance: FUROSEMIDE
  7. LIBERTY CYCLER [Concomitant]
     Active Substance: DEVICE
  8. DELFLEX [Suspect]
     Active Substance: CALCIUM CHLORIDE\DEXTROSE MONOHYDRATE\MAGNESIUM CHLORIDE\SODIUM CHLORIDE\SODIUM LACTATE
     Indication: PERITONEAL DIALYSIS
     Route: 033
     Dates: start: 20140129
  9. APRESOLINE HYDROCHLORIDE [Concomitant]
     Active Substance: HYDRALAZINE HYDROCHLORIDE
  10. CALAPRES [Concomitant]
  11. LIBERTY CYCLER CASSETTE [Concomitant]
     Active Substance: DEVICE

REACTIONS (14)
  - Haemoptysis [None]
  - Hypersomnia [None]
  - Chronic obstructive pulmonary disease [None]
  - Pneumonia [None]
  - Pulmonary oedema [None]
  - Depression [None]
  - Dyspnoea [None]
  - Hypertensive emergency [None]
  - Waist circumference increased [None]
  - Fluid overload [None]
  - Treatment noncompliance [None]
  - Sleep apnoea syndrome [None]
  - Blood pressure increased [None]
  - Device malfunction [None]

NARRATIVE: CASE EVENT DATE: 20140128
